FAERS Safety Report 7639092-5 (Version None)
Quarter: 2011Q3

REPORT INFORMATION
  Report Type: 
  Country: None (occurrence: None)
  Receive Date: 20110727
  Receipt Date: 20110718
  Transmission Date: 20111222
  Serious: Yes (Hospitalization)
  Sender: FDA-Public Use
  Company Number: PHHY2011US64649

PATIENT
  Sex: Male
  Weight: 81.633 kg

DRUGS (1)
  1. MYFORTIC [Suspect]
     Indication: RENAL TRANSPLANT
     Dosage: 300 MG, BID
     Route: 048
     Dates: start: 20101015

REACTIONS (1)
  - PERICARDIAL EFFUSION [None]
